FAERS Safety Report 8846045 (Version 2)
Quarter: 2012Q4

REPORT INFORMATION
  Report Type: Report from Study
  Country: US (occurrence: US)
  Receive Date: 20121017
  Receipt Date: 20121019
  Transmission Date: 20130627
  Serious: Yes (Hospitalization)
  Sender: FDA-Public Use
  Company Number: US-ROCHE-1146141

PATIENT
  Age: 57 Year
  Sex: Male
  Weight: 77 kg

DRUGS (3)
  1. PEG-INTERFERON ALFA 2A [Suspect]
     Indication: HEPATITIS C
     Dosage: last dose of drug 180 mcg on 05/Sep/2012
     Route: 065
     Dates: start: 20120822
  2. RIBAVIRIN [Suspect]
     Indication: HEPATITIS C
     Dosage: last dose of drug 800 mg on 15/Sep/2012
     Route: 065
     Dates: start: 20120822
  3. TELAPREVIR [Suspect]
     Indication: HEPATITIS C
     Dosage: last dose of drug 2250 mg on 15/Sep/2012
     Route: 065
     Dates: start: 20120822

REACTIONS (1)
  - Renal failure [Recovered/Resolved]
